FAERS Safety Report 6707727-7 (Version None)
Quarter: 2010Q2

REPORT INFORMATION
  Report Type: 
  Country: None (occurrence: None)
  Receive Date: 20100503
  Receipt Date: 20091030
  Transmission Date: 20101027
  Serious: No
  Sender: FDA-Public Use
  Company Number: US-ASTRAZENECA-2009SE23754

PATIENT
  Age: 47 Year
  Sex: Male
  Weight: 51.7 kg

DRUGS (2)
  1. NEXIUM [Suspect]
     Route: 048
  2. PRILOSEC [Suspect]
     Indication: GASTRITIS
     Route: 048
     Dates: start: 20090801

REACTIONS (1)
  - GASTRITIS [None]
